FAERS Safety Report 12351026 (Version 1)
Quarter: 2016Q2

REPORT INFORMATION
  Report Type: Spontaneous
  Country: US (occurrence: None)
  Receive Date: 20160509
  Receipt Date: 20160509
  Transmission Date: 20160815
  Serious: Yes (Disabling)
  Sender: FDA-Public Use
  Company Number: None

PATIENT
  Age: 61 Year
  Sex: Female
  Weight: 86.18 kg

DRUGS (8)
  1. PICATO [Suspect]
     Active Substance: INGENOL MEBUTATE
     Indication: ACTINIC KERATOSIS
     Route: 061
  2. MELOXICAM. [Concomitant]
     Active Substance: MELOXICAM
  3. CINNAMON. [Concomitant]
     Active Substance: CINNAMON
  4. VITAMIN C [Concomitant]
     Active Substance: ASCORBIC ACID
  5. TUMERIC [Concomitant]
     Active Substance: TURMERIC
  6. GINGER. [Concomitant]
     Active Substance: GINGER
  7. OSTEO BIFLEX [Concomitant]
     Active Substance: CHONDROITIN SULFATE A\GLUCOSAMINE
  8. FISH OIL [Concomitant]
     Active Substance: FISH OIL

REACTIONS (4)
  - Application site pain [None]
  - Application site exfoliation [None]
  - Burns second degree [None]
  - Application site vesicles [None]

NARRATIVE: CASE EVENT DATE: 20151201
